FAERS Safety Report 19619614 (Version 2)
Quarter: 2022Q2

REPORT INFORMATION
  Report Type: Spontaneous
  Country: US (occurrence: None)
  Receive Date: 20210728
  Receipt Date: 20220621
  Transmission Date: 20220721
  Serious: No
  Sender: FDA-Public Use
  Company Number: US-ROCHE-2699902

PATIENT
  Sex: Female

DRUGS (4)
  1. XELODA [Suspect]
     Active Substance: CAPECITABINE
     Indication: Product used for unknown indication
     Route: 048
     Dates: end: 20200923
  2. TUKYSA [Suspect]
     Active Substance: TUCATINIB
     Indication: Product used for unknown indication
     Dosage: 5, 50 MG TABLETS ON ALTERNATING DAYS.
     Route: 065
  3. TUKYSA [Suspect]
     Active Substance: TUCATINIB
     Dosage: DOSE INCREASE
     Route: 065
  4. HERCEPTIN [Suspect]
     Active Substance: TRASTUZUMAB
     Indication: Product used for unknown indication
     Route: 065
     Dates: end: 20200923

REACTIONS (33)
  - Paranasal sinus hyposecretion [Unknown]
  - Erythema [Recovered/Resolved]
  - Feeling drunk [Unknown]
  - Feeling abnormal [Unknown]
  - Back disorder [Unknown]
  - Dyspnoea [Unknown]
  - Apathy [Unknown]
  - Secretion discharge [Unknown]
  - Agitation [Unknown]
  - Arthritis [Unknown]
  - Macule [Unknown]
  - Breast mass [Unknown]
  - Immobile [Unknown]
  - Catatonia [Unknown]
  - Pruritus [Unknown]
  - Pain [Unknown]
  - Malaise [Unknown]
  - Rash [Not Recovered/Not Resolved]
  - Nausea [Unknown]
  - Mass [Unknown]
  - Fibromyalgia [Unknown]
  - Intentional product misuse [Unknown]
  - Weight decreased [Unknown]
  - Decreased appetite [Unknown]
  - Fall [Unknown]
  - Back pain [Unknown]
  - Neck pain [Unknown]
  - Gastritis [Unknown]
  - Migraine [Unknown]
  - Neoplasm progression [Unknown]
  - Drug ineffective [Unknown]
  - Headache [Unknown]
  - Disease progression [Unknown]
